FAERS Safety Report 18581818 (Version 2)
Quarter: 2020Q4

REPORT INFORMATION
  Report Type: Report from Study
  Country: US (occurrence: US)
  Receive Date: 20201204
  Receipt Date: 20201222
  Transmission Date: 20210114
  Serious: Yes (Hospitalization)
  Sender: FDA-Public Use
  Company Number: US-EISAI MEDICAL RESEARCH-EC-2020-084756

PATIENT
  Age: 49 Year
  Sex: Female
  Weight: 119.7 kg

DRUGS (4)
  1. LENVIMA [Suspect]
     Active Substance: LENVATINIB
     Indication: OVARIAN CANCER
  2. NORVASC [Concomitant]
     Active Substance: AMLODIPINE BESYLATE
  3. ALLOPURINOL. [Concomitant]
     Active Substance: ALLOPURINOL
  4. LENVIMA [Suspect]
     Active Substance: LENVATINIB
     Indication: ENDOMETRIAL CANCER
     Route: 048
     Dates: start: 20201005, end: 202012

REACTIONS (6)
  - Vomiting [Unknown]
  - Rash [Unknown]
  - Clostridium difficile infection [Unknown]
  - Diarrhoea [Unknown]
  - Urinary tract infection [Unknown]
  - Renal impairment [Unknown]

NARRATIVE: CASE EVENT DATE: 2020
